FAERS Safety Report 4659685-7 (Version None)
Quarter: 2005Q2

REPORT INFORMATION
  Report Type: 
  Country: None (occurrence: None)
  Receive Date: 20050420
  Receipt Date: 20050307
  Transmission Date: 20051028
  Serious: No
  Sender: FDA-Public Use
  Company Number: PHEH2005US02834

PATIENT
  Age: 59 Year
  Sex: Female

DRUGS (5)
  1. ENABLEX [Suspect]
     Indication: URINARY INCONTINENCE
     Dosage: 7.5 MG QD
     Dates: start: 20050301
  2. HUMULIN (INSULIN HUMAN, INSULIN ISOPHANE, HUMAN BIOSYNTHETIC) [Concomitant]
  3. PAXIL [Concomitant]
  4. KLOR-CON [Concomitant]
  5. MOBIC [Concomitant]

REACTIONS (3)
  - PRURITUS [None]
  - RASH MACULAR [None]
  - SKIN DISCOLOURATION [None]
